FAERS Safety Report 8019885-5 (Version None)
Quarter: 2012Q1

REPORT INFORMATION
  Report Type: 
  Country: None (occurrence: None)
  Receive Date: 20120103
  Receipt Date: 20111227
  Transmission Date: 20120608
  Serious: Yes (Death)
  Sender: FDA-Public Use
  Company Number: US-JNJFOC-20111211956

PATIENT
  Age: 31 Year
  Sex: Male

DRUGS (1)
  1. FENTANYL [Suspect]
     Indication: PRODUCT USED FOR UNKNOWN INDICATION
     Route: 048

REACTIONS (3)
  - INTENTIONAL DRUG MISUSE [None]
  - PANCREATITIS [None]
  - TOXICITY TO VARIOUS AGENTS [None]
